FAERS Safety Report 12559569 (Version 2)
Quarter: 2016Q4

REPORT INFORMATION
  Report Type: Report from Study
  Country: IN (occurrence: IN)
  Receive Date: 20160715
  Receipt Date: 20161115
  Transmission Date: 20170207
  Serious: Yes (Death)
  Sender: FDA-Public Use
  Company Number: PHHY2016IN094687

PATIENT

DRUGS (1)
  1. GLIVEC [Suspect]
     Active Substance: IMATINIB MESYLATE
     Indication: FOETAL EXPOSURE DURING PREGNANCY
     Dosage: MATERNAL DOSE (600 MG)
     Route: 064

REACTIONS (4)
  - Foetal distress syndrome [Fatal]
  - Foetal exposure timing unspecified [Unknown]
  - Respiratory disorder neonatal [Fatal]
  - Premature baby [Fatal]
